FAERS Safety Report 8340496-6 (Version None)
Quarter: 2012Q2

REPORT INFORMATION
  Report Type: 
  Country: None (occurrence: None)
  Receive Date: 20120507
  Receipt Date: 20090729
  Transmission Date: 20120825
  Serious: No
  Sender: FDA-Public Use
  Company Number: US-TEVA-2009009036

PATIENT
  Sex: Male
  Weight: 90.8 kg

DRUGS (3)
  1. ASPIRIN [Concomitant]
     Dosage: 81 MILLIGRAM;
     Route: 048
  2. TREANDA [Suspect]
     Route: 042
     Dates: start: 20090728
  3. TREANDA [Suspect]
     Indication: DIFFUSE LARGE B-CELL LYMPHOMA
     Route: 042
     Dates: start: 20090701, end: 20090701

REACTIONS (4)
  - FATIGUE [None]
  - RASH [None]
  - DECREASED APPETITE [None]
  - ASTHENIA [None]
